FAERS Safety Report 14991771 (Version 2)
Quarter: 2018Q3

REPORT INFORMATION
  Report Type: Spontaneous
  Country: FR (occurrence: FR)
  Receive Date: 20180608
  Receipt Date: 20180709
  Transmission Date: 20181010
  Serious: Yes (Hospitalization, Other)
  Sender: FDA-Public Use
  Company Number: FR-SA-2018SA146212

PATIENT
  Age: 22 Year
  Sex: Male

DRUGS (2)
  1. SPECIAFOLDINE [Concomitant]
     Active Substance: FOLIC ACID
     Dosage: 5 DF, QD
     Route: 048
  2. CEREZYME [Suspect]
     Active Substance: IMIGLUCERASE
     Indication: GAUCHER^S DISEASE TYPE I
     Dosage: 120 IU/KG, QOW
     Route: 041
     Dates: start: 20171204

REACTIONS (1)
  - Endocarditis staphylococcal [Recovered/Resolved]

NARRATIVE: CASE EVENT DATE: 20180518
